FAERS Safety Report 4648962-1 (Version None)
Quarter: 2005Q2

REPORT INFORMATION
  Report Type: 
  Country: None (occurrence: None)
  Receive Date: 20050427
  Receipt Date: 20050414
  Transmission Date: 20051028
  Serious: Yes (Hospitalization, Other)
  Sender: FDA-Public Use
  Company Number: HQWYE050915APR05

PATIENT
  Age: 50 Year
  Sex: Male
  Weight: 75 kg

DRUGS (5)
  1. RAPAMUNE [Suspect]
     Indication: IMMUNOSUPPRESSANT DRUG THERAPY
     Dosage: 4 MG 1X PER 1 DAY, ORAL
     Route: 048
     Dates: start: 20040921
  2. RAPAMUNE [Suspect]
     Indication: PROPHYLAXIS AGAINST TRANSPLANT REJECTION
     Dosage: 4 MG 1X PER 1 DAY, ORAL
     Route: 048
     Dates: start: 20040921
  3. CELLCEPT [Suspect]
     Indication: IMMUNOSUPPRESSANT DRUG THERAPY
     Dosage: 1 G 2X PER 1 DAY, ORAL
     Route: 048
     Dates: start: 20040921
  4. CORTICOSTEROID NOS (CORTICOSTEROID NOS,) [Suspect]
     Dosage: ORAL
     Route: 048
  5. INSULIN [Concomitant]

REACTIONS (7)
  - CITROBACTER INFECTION [None]
  - CULTURE WOUND POSITIVE [None]
  - DIABETIC FOOT INFECTION [None]
  - ENTEROCOCCAL INFECTION [None]
  - GANGRENE [None]
  - OSTEOMYELITIS [None]
  - TOE AMPUTATION [None]
